FAERS Safety Report 4313764-2 (Version None)
Quarter: 2004Q1

REPORT INFORMATION
  Report Type: 
  Country: None (occurrence: None)
  Receive Date: 20040305
  Receipt Date: 20040223
  Transmission Date: 20041129
  Serious: Yes (Death)
  Sender: FDA-Public Use
  Company Number: USA-2003-0011511

PATIENT
  Age: 73 Year
  Sex: Male
  Weight: 67.1 kg

DRUGS (6)
  1. OXYCODONE HCL [Suspect]
  2. HYDROCODONE BITARTRATE [Suspect]
  3. DIHYDROCODEINE/CAFFEINE/ACETAMINOPHEN (DIHYDROCODEINE, DIHYDROCODEINE, [Suspect]
  4. ERYTHROMYCIN [Suspect]
  5. CHLORPHENIRAMINE TAB [Suspect]
  6. NALTREXONE (NALTREXONE) [Suspect]

REACTIONS (4)
  - CARBON MONOXIDE POISONING [None]
  - COMA [None]
  - COMPLETED SUICIDE [None]
  - LUNG NEOPLASM MALIGNANT [None]
